FAERS Safety Report 19802456 (Version 1)
Quarter: 2021Q3

REPORT INFORMATION
  Report Type: Spontaneous
  Country: US (occurrence: US)
  Receive Date: 20210908
  Receipt Date: 20210908
  Transmission Date: 20211014
  Serious: No
  Sender: FDA-Public Use
  Company Number: US-CELGENEUS-USA-20210809113

PATIENT
  Age: 80 Year
  Sex: Female

DRUGS (1)
  1. REVLIMID [Suspect]
     Active Substance: LENALIDOMIDE
     Indication: PLASMA CELL MYELOMA
     Dosage: 10 MILLIGRAM
     Route: 048
     Dates: start: 202108

REACTIONS (9)
  - Peripheral swelling [Unknown]
  - Insomnia [Unknown]
  - Rash pruritic [Unknown]
  - Feeling abnormal [Unknown]
  - Cognitive disorder [Unknown]
  - Joint swelling [Unknown]
  - Fatigue [Unknown]
  - Abdominal distension [Unknown]
  - Somnolence [Unknown]

NARRATIVE: CASE EVENT DATE: 20210812
